FAERS Safety Report 5262074-8 (Version None)
Quarter: 2007Q1

REPORT INFORMATION
  Report Type: 
  Country: None (occurrence: None)
  Receive Date: 20061208
  Receipt Date: 20061003
  Transmission Date: 20070707
  Serious: Yes (Other)
  Sender: FDA-Public Use
  Company Number: USA-2006-0025308

PATIENT
  Sex: Male

DRUGS (2)
  1. OXYCONTIN [Suspect]
     Indication: PAIN
     Dosage: 40 MG, SEE TEXT, ORAL
     Route: 048
  2. HYDROCODONE (HYDROCODONE) [Suspect]
     Indication: POST LAMINECTOMY SYNDROME
     Dosage: SEE TEXT

REACTIONS (1)
  - DRUG ABUSER [None]
